FAERS Safety Report 7761931-8 (Version None)
Quarter: 2011Q3

REPORT INFORMATION
  Report Type: 
  Country: None (occurrence: None)
  Receive Date: 20110825
  Receipt Date: 20110705
  Transmission Date: 20111222
  Serious: No
  Sender: FDA-Public Use
  Company Number: 331318

PATIENT
  Age: 52 Year
  Sex: Female

DRUGS (3)
  1. VICTOZA [Suspect]
     Indication: BLOOD GLUCOSE ABNORMAL
     Dosage: SUBCUTANEOUS
     Route: 058
     Dates: start: 20110702
  2. VICTOZA [Suspect]
     Indication: WEIGHT CONTROL
     Dosage: SUBCUTANEOUS
     Route: 058
     Dates: start: 20110702
  3. ACIFLUX /00550802/ (RANITIDINE HYDROCHLORIDE) [Concomitant]

REACTIONS (1)
  - DYSPEPSIA [None]
